FAERS Safety Report 6781938-7 (Version None)
Quarter: 2010Q2

REPORT INFORMATION
  Report Type: 
  Country: None (occurrence: None)
  Receive Date: 20100621
  Receipt Date: 20100608
  Transmission Date: 20101027
  Serious: Yes (Hospitalization)
  Sender: FDA-Public Use
  Company Number: IT-ELI_LILLY_AND_COMPANY-IT201006003088

PATIENT
  Age: 65 Year
  Sex: Female

DRUGS (4)
  1. EFFIENT [Suspect]
     Indication: ANGINA UNSTABLE
     Dosage: 10 MG, DAILY (1/D)
     Route: 065
  2. ACETYLSALICYLIC ACID [Concomitant]
     Dosage: UNK, UNKNOWN
     Route: 065
  3. STATIN /00084401/ [Concomitant]
     Dosage: UNK, UNKNOWN
     Route: 065
  4. ACE INHIBITOR NOS [Concomitant]
     Dosage: UNK, UNKNOWN
     Route: 065

REACTIONS (4)
  - BLOOD BILIRUBIN INCREASED [None]
  - HEPATITIS [None]
  - JAUNDICE [None]
  - TRANSAMINASES INCREASED [None]
